FAERS Safety Report 13921762 (Version 1)
Quarter: 2017Q3

REPORT INFORMATION
  Report Type: Spontaneous
  Country: US (occurrence: None)
  Receive Date: 20170830
  Receipt Date: 20170830
  Transmission Date: 20171127
  Serious: No
  Sender: FDA-Public Use
  Company Number: None

PATIENT
  Age: 37 Year
  Sex: Male
  Weight: 180 kg

DRUGS (1)
  1. ANCEF [Suspect]
     Active Substance: CEFAZOLIN SODIUM
     Dosage: 1 GRAM PRE-OP IV
     Route: 042
     Dates: start: 20170810

REACTIONS (2)
  - Injection related reaction [None]
  - Vomiting [None]

NARRATIVE: CASE EVENT DATE: 20170810
